FAERS Safety Report 25656886 (Version 2)
Quarter: 2025Q3

REPORT INFORMATION
  Report Type: Report from Study
  Country: US (occurrence: US)
  Receive Date: 20250807
  Receipt Date: 20250917
  Transmission Date: 20251020
  Serious: Yes (Other)
  Sender: MALLINCKRODT
  Company Number: US-MALLINCKRODT-MNK202504824

PATIENT
  Age: 60 Year
  Sex: Female

DRUGS (3)
  1. CORTICOTROPIN [Suspect]
     Active Substance: CORTICOTROPIN
     Indication: Rheumatoid arthritis
     Route: 058
  2. CORTICOTROPIN [Suspect]
     Active Substance: CORTICOTROPIN
     Indication: Dermatomyositis
  3. CORTICOTROPIN [Suspect]
     Active Substance: CORTICOTROPIN
     Indication: Dermatomyositis

REACTIONS (4)
  - Immunosuppression [Unknown]
  - Urinary tract infection [Recovered/Resolved]
  - Sinusitis [Recovered/Resolved]
  - Injection site bruising [Unknown]
